FAERS Safety Report 14131690 (Version 4)
Quarter: 2017Q4

REPORT INFORMATION
  Report Type: Spontaneous
  Country: FI (occurrence: FI)
  Receive Date: 20171026
  Receipt Date: 20171206
  Transmission Date: 20180321
  Serious: Yes (Other)
  Sender: FDA-Public Use
  Company Number: FI-BEH-2017084257

PATIENT
  Age: 86 Year
  Sex: Male

DRUGS (4)
  1. OCTAGAM IMMUNE GLOBULIN (HUMAN) [Concomitant]
     Active Substance: HUMAN IMMUNOGLOBULIN G
     Indication: LICHEN MYXOEDEMATOSUS
     Dosage: 28 G, UNK, FOR 4 DAYS, THEN 6 WEEKS PAUSE
     Route: 065
     Dates: start: 201405, end: 201706
  2. PRIVIGEN [Suspect]
     Active Substance: HUMAN IMMUNOGLOBULIN G
     Indication: LICHEN MYXOEDEMATOSUS
     Dosage: 28 G, UNK, FOR 4 DAYS, THEN 6 WEEKS PAUSE
     Route: 065
     Dates: start: 201706
  3. PRIVIGEN [Suspect]
     Active Substance: HUMAN IMMUNOGLOBULIN G
     Indication: LICHEN MYXOEDEMATOSUS
     Dosage: 28 G, UNK, FOR 4 DAYS, THEN 6 WEEKS PAUSE
     Route: 065
  4. OCTAGAM IMMUNE GLOBULIN (HUMAN) [Concomitant]
     Active Substance: HUMAN IMMUNOGLOBULIN G
     Indication: LICHEN MYXOEDEMATOSUS
     Dosage: 28 G, UNK, FOR 4 DAYS, THEN 6 WEEKS PAUSE
     Route: 065

REACTIONS (3)
  - Dyspnoea [Unknown]
  - Drug ineffective for unapproved indication [Unknown]
  - Scleroderma-like reaction [Unknown]
